FAERS Safety Report 18362440 (Version 1)
Quarter: 2020Q4

REPORT INFORMATION
  Report Type: Spontaneous
  Country: RS (occurrence: RS)
  Receive Date: 20201008
  Receipt Date: 20201008
  Transmission Date: 20210114
  Serious: Yes (Other)
  Sender: FDA-Public Use
  Company Number: NVSC2020RS268010

PATIENT
  Age: 70 Year
  Sex: Female

DRUGS (5)
  1. ULTIBRO BREEZHALER [Suspect]
     Active Substance: GLYCOPYRRONIUM\INDACATEROL
     Indication: CHRONIC OBSTRUCTIVE PULMONARY DISEASE
     Dosage: 1 DF, QD 1 INHALATION IN THE MORNING
     Route: 055
     Dates: start: 201812
  2. BERODUAL [Concomitant]
     Active Substance: FENOTEROL HYDROBROMIDE\IPRATROPIUM BROMIDE
     Indication: PRODUCT USED FOR UNKNOWN INDICATION
     Dosage: 2 INHALATION AS NEEDED
     Route: 065
  3. FLUIMUCIL [Concomitant]
     Active Substance: ACETYLCYSTEINE
     Indication: PRODUCT USED FOR UNKNOWN INDICATION
     Dosage: UNK, 600
     Route: 065
     Dates: start: 201812
  4. PREVNAR 13 [Concomitant]
     Active Substance: PNEUMOCOCCAL 13-VALENT CONJUGATE VACCINE
     Indication: INFLUENZA IMMUNISATION
     Dosage: UNK
     Route: 065
  5. PREVNAR 13 [Concomitant]
     Active Substance: PNEUMOCOCCAL 13-VALENT CONJUGATE VACCINE
     Indication: PNEUMOCOCCAL IMMUNISATION

REACTIONS (6)
  - Fatigue [Unknown]
  - C-reactive protein abnormal [Unknown]
  - Nasopharyngitis [Unknown]
  - Sputum discoloured [Unknown]
  - Moraxella infection [Unknown]
  - Sputum increased [Unknown]

NARRATIVE: CASE EVENT DATE: 2019
